FAERS Safety Report 6513012-9 (Version None)
Quarter: 2009Q4

REPORT INFORMATION
  Report Type: 
  Country: None (occurrence: None)
  Receive Date: 20091222
  Receipt Date: 20091222
  Transmission Date: 20100525
  Serious: No
  Sender: FDA-Public Use
  Company Number: None

PATIENT
  Sex: Male
  Weight: 75.5 kg

DRUGS (1)
  1. OMEPRAZOLE [Suspect]

REACTIONS (1)
  - NO THERAPEUTIC RESPONSE [None]
